FAERS Safety Report 5866500-2 (Version None)
Quarter: 2008Q3

REPORT INFORMATION
  Report Type: 
  Country: None (occurrence: None)
  Receive Date: 20080902
  Receipt Date: 20080902
  Transmission Date: 20090109
  Serious: Yes (Hospitalization)
  Sender: FDA-Public Use
  Company Number: PHEH1995US03095

PATIENT
  Sex: Male

DRUGS (2)
  1. SANDIMMUNE [Suspect]
     Route: 048
     Dates: start: 19951203
  2. SANDIMMUNE [Suspect]
     Dates: start: 19951209

REACTIONS (2)
  - CONVULSION [None]
  - DRUG LEVEL INCREASED [None]
